FAERS Safety Report 6771970-1 (Version None)
Quarter: 2010Q2

REPORT INFORMATION
  Report Type: 
  Country: None (occurrence: None)
  Receive Date: 20100616
  Receipt Date: 20090709
  Transmission Date: 20101027
  Serious: No
  Sender: FDA-Public Use
  Company Number: US-ASTRAZENECA-2009UW19293

PATIENT
  Age: 796 Month
  Sex: Female
  Weight: 61.2 kg

DRUGS (4)
  1. RHINOCORT [Suspect]
     Indication: MULTIPLE ALLERGIES
     Dosage: TWO SPRAYS EACH NOSTRIL, ONCE A DAY
     Route: 045
     Dates: start: 20050101
  2. TOPROL-XL [Concomitant]
  3. ZYRTEC [Concomitant]
  4. PROGESTERONE [Concomitant]

REACTIONS (1)
  - MYALGIA [None]
